FAERS Safety Report 6522943-5 (Version None)
Quarter: 2009Q4

REPORT INFORMATION
  Report Type: 
  Country: None (occurrence: None)
  Receive Date: 20091230
  Receipt Date: 20091222
  Transmission Date: 20100525
  Serious: Yes (Other)
  Sender: FDA-Public Use
  Company Number: US-GENENTECH-295450

PATIENT
  Sex: Female
  Weight: 54.422 kg

DRUGS (7)
  1. XOLAIR [Suspect]
     Indication: ASTHMA
     Dosage: 375 MG, UNK
     Dates: start: 20091109
  2. FEXOFENADINE [Concomitant]
     Indication: HYPERSENSITIVITY
     Dosage: 180 MG, QD
     Route: 048
  3. ZYRTEC [Concomitant]
     Indication: HYPERSENSITIVITY
     Dosage: 10 MG, BID
     Route: 048
  4. DOXEPIN HCL [Concomitant]
     Indication: INSOMNIA
     Dosage: 15 MG, QHS
     Route: 048
  5. DOXEPIN HCL [Concomitant]
     Indication: PRURITUS
  6. ALVESCO [Concomitant]
     Indication: ASTHMA
     Dosage: 1 PUFF, QD
  7. EPIPEN [Concomitant]
     Indication: ANAPHYLACTIC REACTION
     Dosage: UNK

REACTIONS (1)
  - HYPERSENSITIVITY [None]
